FAERS Safety Report 7373256-3 (Version None)
Quarter: 2011Q1

REPORT INFORMATION
  Report Type: 
  Country: None (occurrence: None)
  Receive Date: 20110324
  Receipt Date: 20110322
  Transmission Date: 20110831
  Serious: Yes (Disabling, Other)
  Sender: FDA-Public Use
  Company Number: US-CEPHALON-2010004465

PATIENT
  Sex: Female
  Weight: 91 kg

DRUGS (5)
  1. PROVIGIL [Suspect]
     Indication: NARCOLEPSY
     Route: 048
     Dates: start: 20020801
  2. PROVIGIL [Suspect]
     Route: 048
     Dates: start: 20050101
  3. PROVIGIL [Suspect]
     Route: 048
     Dates: start: 20081101
  4. EFFEXOR XR [Concomitant]
     Dates: start: 20081001
  5. PROVIGIL [Suspect]
     Route: 048
     Dates: start: 20030101

REACTIONS (6)
  - DRUG PRESCRIBING ERROR [None]
  - DRUG TOLERANCE [None]
  - PRURITUS [None]
  - RASH PAPULAR [None]
  - SWELLING [None]
  - HYPERSENSITIVITY [None]
